FAERS Safety Report 4979601-8 (Version None)
Quarter: 2006Q2

REPORT INFORMATION
  Report Type: 
  Country: None (occurrence: None)
  Receive Date: 20060421
  Receipt Date: 20060314
  Transmission Date: 20061013
  Serious: Yes (Hospitalization)
  Sender: FDA-Public Use
  Company Number: JP-ROCHE-440305

PATIENT
  Age: 78 Year
  Sex: Female

DRUGS (10)
  1. PANALDINE [Suspect]
     Indication: CEREBRAL INFARCTION
     Route: 048
     Dates: start: 19980702
  2. MEPTIN [Suspect]
     Indication: DRUG USE FOR UNKNOWN INDICATION
     Route: 055
     Dates: start: 19990127, end: 19990211
  3. MEPTIN [Suspect]
     Route: 055
     Dates: start: 20060221
  4. GLAKAY [Concomitant]
     Indication: OSTEOPOROSIS
     Route: 048
     Dates: start: 19980702
  5. JUVELA N [Concomitant]
     Route: 048
     Dates: start: 19980702
  6. SELBEX [Concomitant]
     Indication: GASTRIC ULCER
     Route: 048
     Dates: start: 19980702
  7. ALOSENN [Concomitant]
     Indication: CONSTIPATION
     Route: 048
     Dates: start: 19981009
  8. LENDORMIN [Concomitant]
     Indication: INSOMNIA
     Route: 048
     Dates: start: 19980702
  9. HALCION [Concomitant]
     Indication: INSOMNIA
     Route: 048
     Dates: start: 20050822
  10. RISEDRONATE SODIUM [Concomitant]
     Indication: OSTEOPOROSIS
     Route: 048
     Dates: start: 20051225

REACTIONS (4)
  - BRONCHITIS [None]
  - FRACTURE [None]
  - INTERSTITIAL LUNG DISEASE [None]
  - NASOPHARYNGITIS [None]
